FAERS Safety Report 4372429-1 (Version None)
Quarter: 2004Q2

REPORT INFORMATION
  Report Type: 
  Country: None (occurrence: None)
  Receive Date: 20040526
  Receipt Date: 20040514
  Transmission Date: 20050107
  Serious: Yes (Other)
  Sender: FDA-Public Use
  Company Number: AT-JNJFOC-20040502867

PATIENT
  Sex: 0

DRUGS (1)
  1. DURAGESIC [Suspect]
     Dosage: 1 DOSE(S), TRANSDERMAL
     Route: 062

REACTIONS (2)
  - PHARMACEUTICAL PRODUCT COMPLAINT [None]
  - RESPIRATORY DEPRESSION [None]
